FAERS Safety Report 20196958 (Version 1)
Quarter: 2021Q4

REPORT INFORMATION
  Report Type: Spontaneous
  Country: US (occurrence: US)
  Receive Date: 20211217
  Receipt Date: 20211217
  Transmission Date: 20220303
  Serious: No
  Sender: FDA-Public Use
  Company Number: US-SA-SAC20211210000759

PATIENT
  Sex: Female

DRUGS (18)
  1. AUBAGIO [Suspect]
     Active Substance: TERIFLUNOMIDE
     Indication: Multiple sclerosis
     Dosage: 14 MG, QD
     Route: 048
  2. AIMOVIG [Concomitant]
     Active Substance: ERENUMAB-AOOE
  3. ALBUTEROL SULFATE [Concomitant]
     Active Substance: ALBUTEROL SULFATE
  4. AMITRIPTYLINE [Concomitant]
     Active Substance: AMITRIPTYLINE
     Dosage: UNK MG
  5. BACLOFEN [Concomitant]
     Active Substance: BACLOFEN
  6. COMBIVENT [Concomitant]
     Active Substance: ALBUTEROL SULFATE\IPRATROPIUM BROMIDE
  7. DILTIAZEM [Concomitant]
     Active Substance: DILTIAZEM
  8. EZETIMIBE [Concomitant]
     Active Substance: EZETIMIBE
  9. FENOFIBRATE [Concomitant]
     Active Substance: FENOFIBRATE
  10. FLUTICASONE [Concomitant]
     Active Substance: FLUTICASONE
  11. OMEPRAZOLE [Concomitant]
     Active Substance: OMEPRAZOLE
  12. OXYBUTYNIN [Concomitant]
     Active Substance: OXYBUTYNIN
  13. POTASSIUM [Concomitant]
     Active Substance: POTASSIUM
  14. PROMETHAZINE [Concomitant]
     Active Substance: PROMETHAZINE HYDROCHLORIDE
  15. QUETIAPINE [Concomitant]
     Active Substance: QUETIAPINE
  16. TORSEMIDE [Concomitant]
     Active Substance: TORSEMIDE
  17. TRAZODONE [Concomitant]
     Active Substance: TRAZODONE HYDROCHLORIDE
  18. VASCEPA [Concomitant]
     Active Substance: ICOSAPENT ETHYL

REACTIONS (3)
  - Upper respiratory tract infection [Not Recovered/Not Resolved]
  - Decreased appetite [Not Recovered/Not Resolved]
  - Ageusia [Not Recovered/Not Resolved]
